FAERS Safety Report 25940049 (Version 1)
Quarter: 2025Q4

REPORT INFORMATION
  Report Type: Report from Study
  Country: US (occurrence: US)
  Receive Date: 20251020
  Receipt Date: 20251020
  Transmission Date: 20260118
  Serious: Yes (Other)
  Sender: BAUSCH AND LOMB
  Company Number: US-BAUSCHBL-2025BNL030208

PATIENT
  Age: 55 Year
  Sex: Female

DRUGS (1)
  1. MIEBO [Suspect]
     Active Substance: PERFLUOROHEXYLOCTANE
     Indication: Product used for unknown indication
     Dosage: INSTILL 1 DROP INTO EACH EYE 2 TIMES DAILY
     Route: 047
     Dates: start: 20240201, end: 20241031

REACTIONS (3)
  - Blindness unilateral [Unknown]
  - Central serous chorioretinopathy [Unknown]
  - Inappropriate schedule of product administration [Unknown]
